FAERS Safety Report 18107572 (Version 1)
Quarter: 2020Q3

REPORT INFORMATION
  Report Type: Spontaneous
  Country: US (occurrence: US)
  Receive Date: 20200803
  Receipt Date: 20200803
  Transmission Date: 20201103
  Serious: Yes (Death, Other)
  Sender: FDA-Public Use
  Company Number: US-REGENERON PHARMACEUTICALS, INC.-2020-57284

PATIENT

DRUGS (1)
  1. LIBTAYO [Suspect]
     Active Substance: CEMIPLIMAB-RWLC
     Indication: SKIN SQUAMOUS CELL CARCINOMA METASTATIC
     Dosage: 350 MG
     Route: 041

REACTIONS (16)
  - Visual acuity reduced [Unknown]
  - Dysphagia [Unknown]
  - Myositis [Unknown]
  - Myasthenia gravis [Unknown]
  - Increased upper airway secretion [Unknown]
  - Fatigue [Unknown]
  - Dysphonia [Unknown]
  - Cardiac arrest [Fatal]
  - Back pain [Unknown]
  - Myocarditis [Unknown]
  - Metabolic acidosis [Unknown]
  - Dysstasia [Unknown]
  - Dyspnoea [Unknown]
  - Hyperkalaemia [Unknown]
  - Renal impairment [Unknown]
  - Arthralgia [Unknown]
